FAERS Safety Report 17721425 (Version 1)
Quarter: 2020Q2

REPORT INFORMATION
  Report Type: Spontaneous
  Country: US (occurrence: US)
  Receive Date: 20200429
  Receipt Date: 20200429
  Transmission Date: 20200714
  Serious: Yes (Hospitalization, Other)
  Sender: FDA-Public Use
  Company Number: US-ADVANZ PHARMA-GSH201801-000313

PATIENT

DRUGS (2)
  1. HYDROXYCHLOROQUINE [Suspect]
     Active Substance: HYDROXYCHLOROQUINE
     Indication: PRODUCT USED FOR UNKNOWN INDICATION
     Dosage: 4 DOSAGE FORM, TABLET
     Route: 048
  2. ONDANSETRON HYDROCHLORIDE. [Interacting]
     Active Substance: ONDANSETRON HYDROCHLORIDE
     Indication: TOXICITY TO VARIOUS AGENTS
     Dosage: 4 MG, UNK
     Route: 042

REACTIONS (10)
  - Hypotension [Unknown]
  - Toxicity to various agents [Unknown]
  - Hypokalaemia [Recovered/Resolved]
  - Ventricular extrasystoles [Recovered/Resolved]
  - Electrocardiogram QT prolonged [Recovered/Resolved]
  - Sinus tachycardia [Recovered/Resolved]
  - Ventricular tachycardia [Recovered/Resolved]
  - Ventricular arrhythmia [Recovered/Resolved]
  - Drug interaction [Unknown]
  - Torsade de pointes [Recovered/Resolved]
